FAERS Safety Report 12950979 (Version 3)
Quarter: 2017Q1

REPORT INFORMATION
  Report Type: Report from Study
  Country: US (occurrence: US)
  Receive Date: 20161117
  Receipt Date: 20170317
  Transmission Date: 20170428
  Serious: Yes (Death, Other)
  Sender: FDA-Public Use
  Company Number: US-REGENERON PHARMACEUTICALS, INC.-2016-23868

PATIENT

DRUGS (2)
  1. EYLEA [Suspect]
     Active Substance: AFLIBERCEPT
     Indication: RETINAL VEIN OCCLUSION
     Dosage: RIGHT EYE (OD), 2 MG, EVERY 4 WKS, 1ST INJECTION
     Route: 031
     Dates: start: 20150708, end: 20150708
  2. EYLEA [Suspect]
     Active Substance: AFLIBERCEPT
     Indication: MACULAR OEDEMA
     Dosage: RIGHT EYE (OD), 2 MG, EVERY 4 WKS, 2ND INJECTION
     Route: 031
     Dates: start: 20150812, end: 20150812

REACTIONS (1)
  - Death [Fatal]

NARRATIVE: CASE EVENT DATE: 20160417
